FAERS Safety Report 15594501 (Version 1)
Quarter: 2018Q4

REPORT INFORMATION
  Report Type: Spontaneous
  Country: US (occurrence: US)
  Receive Date: 20181107
  Receipt Date: 20181107
  Transmission Date: 20190205
  Serious: No
  Sender: FDA-Public Use
  Company Number: US-BEH-2018096519

PATIENT
  Sex: Female

DRUGS (1)
  1. HIZENTRA [Suspect]
     Active Substance: HUMAN IMMUNOGLOBULIN G
     Indication: PRODUCT USED FOR UNKNOWN INDICATION
     Dosage: 5 G, QW
     Route: 065
     Dates: start: 20181026

REACTIONS (3)
  - Infusion site pain [Unknown]
  - Vomiting [Unknown]
  - Nausea [Unknown]

NARRATIVE: CASE EVENT DATE: 201810
